FAERS Safety Report 11502262 (Version 2)
Quarter: 2016Q3

REPORT INFORMATION
  Report Type: Spontaneous
  Country: US (occurrence: US)
  Receive Date: 20150914
  Receipt Date: 20160915
  Transmission Date: 20161109
  Serious: No
  Sender: FDA-Public Use
  Company Number: US-ASTELLAS-2015US019204

PATIENT
  Age: 76 Year
  Sex: Male

DRUGS (2)
  1. XTANDI [Suspect]
     Active Substance: ENZALUTAMIDE
     Indication: PROSTATE CANCER
     Route: 048
     Dates: start: 20130306
  2. XTANDI [Suspect]
     Active Substance: ENZALUTAMIDE
     Route: 048
     Dates: start: 20141101

REACTIONS (5)
  - Pain [Unknown]
  - Memory impairment [Unknown]
  - Drug dose omission [Unknown]
  - Drug dose omission [Unknown]
  - Tooth injury [Unknown]

NARRATIVE: CASE EVENT DATE: 201605
